FAERS Safety Report 10427864 (Version 1)
Quarter: 2014Q3

REPORT INFORMATION
  Report Type: Spontaneous
  Country: US (occurrence: US)
  Receive Date: 20140903
  Receipt Date: 20140903
  Transmission Date: 20150326
  Serious: Yes (Congenital Anomaly)
  Sender: FDA-Public Use
  Company Number: US-FRI-1000070233

PATIENT
  Age: 0 Day
  Sex: Male

DRUGS (1)
  1. LEXAPRO [Suspect]
     Active Substance: ESCITALOPRAM OXALATE
     Route: 064
     Dates: end: 20120813

REACTIONS (6)
  - Patent ductus arteriosus [Unknown]
  - Wolff-Parkinson-White syndrome [Unknown]
  - Right ventricular hypertrophy [Unknown]
  - Supraventricular tachycardia [Unknown]
  - Atrial septal defect [Unknown]
  - Congenital anomaly [Unknown]

NARRATIVE: CASE EVENT DATE: 20120813
